FAERS Safety Report 25032335 (Version 1)
Quarter: 2025Q1

REPORT INFORMATION
  Report Type: Spontaneous
  Country: ES (occurrence: ES)
  Receive Date: 20250303
  Receipt Date: 20250303
  Transmission Date: 20250408
  Serious: Yes (Hospitalization, Other)
  Sender: MERCK SHARP & DOHME LLC
  Company Number: None

PATIENT
  Age: 70 Year
  Sex: Male

DRUGS (10)
  1. NOXAFIL [Interacting]
     Active Substance: POSACONAZOLE
     Indication: Antifungal prophylaxis
     Dosage: DOSE DESCRIPTION : 100 MG EVERY 8 HOURS?DAILY DOSE : 300 MILLIGRAM?CONCENTRATION: 100 MILLIGRAM?R...
     Route: 048
     Dates: start: 20190108, end: 20190131
  2. DIGOXIN [Interacting]
     Active Substance: DIGOXIN
     Indication: Atrial fibrillation
     Dosage: DOSE DESCRIPTION : 0.25MG, Q24H?DAILY DOSE : 0.25 MILLIGRAM?CONCENTRATION: 0.25 MILLIGRAM
     Route: 048
     Dates: start: 20181025, end: 20190131
  3. LEVOFLOXACIN [Interacting]
     Active Substance: LEVOFLOXACIN
     Indication: Febrile neutropenia
     Dosage: DOSE DESCRIPTION : 500 MG EVERY 24H?DAILY DOSE : 500 MILLIGRAM
     Route: 048
     Dates: start: 20190125
  4. EPLERENONE [Suspect]
     Active Substance: EPLERENONE
     Dosage: DOSE DESCRIPTION : 75 MILLIGRAM, QD?DAILY DOSE : 75 MILLIGRAM
  5. FUROSEMIDE [Suspect]
     Active Substance: FUROSEMIDE
     Dosage: DOSE DESCRIPTION : 40 MILLIGRAM, QD?DAILY DOSE : 40 MILLIGRAM
  6. CARVEDILOL [Suspect]
     Active Substance: CARVEDILOL
     Dosage: DOSE DESCRIPTION : 12.5 MILLIGRAM, QD?DAILY DOSE : 12.5 MILLIGRAM
  7. BISOPROLOL [Concomitant]
     Active Substance: BISOPROLOL
     Indication: Atrial fibrillation
     Dates: start: 2017
  8. RANITIDINE [Concomitant]
     Active Substance: RANITIDINE
     Dosage: DOSE DESCRIPTION : 300 MILLIGRAM, QD?DAILY DOSE : 300 MILLIGRAM
  9. RIVASTIGMINE [Concomitant]
     Active Substance: RIVASTIGMINE
     Dosage: DOSE DESCRIPTION : 60 MILLIGRAM, Q8H?DAILY DOSE : 180 MILLIGRAM
  10. DECITABINE [Concomitant]
     Active Substance: DECITABINE
     Indication: Acute myeloid leukaemia

REACTIONS (6)
  - Cardioactive drug level increased [Recovered/Resolved]
  - Atrioventricular block [Recovered/Resolved]
  - Drug interaction [Recovered/Resolved]
  - Bradycardia [Recovered/Resolved]
  - Toxicity to various agents [Unknown]
  - Labelled drug-drug interaction issue [Unknown]

NARRATIVE: CASE EVENT DATE: 20190101
